FAERS Safety Report 24428348 (Version 1)
Quarter: 2024Q4

REPORT INFORMATION
  Report Type: Spontaneous
  Country: GB (occurrence: GB)
  Receive Date: 20241011
  Receipt Date: 20241011
  Transmission Date: 20250115
  Serious: Yes (Other)
  Sender: ELI LILLY AND CO
  Company Number: None

PATIENT
  Age: 23 Year
  Sex: Female
  Weight: 57 kg

DRUGS (1)
  1. DULOXETINE HYDROCHLORIDE [Suspect]
     Active Substance: DULOXETINE HYDROCHLORIDE
     Indication: Fibromyalgia
     Dosage: 80 MG, UNKNOWN (REDUCING 20 MG EVERY FEW WEEKS)
     Route: 065
     Dates: start: 20200101, end: 20240917

REACTIONS (13)
  - Medication error [Unknown]
  - Electric shock sensation [Not Recovered/Not Resolved]
  - Irritability [Recovered/Resolved with Sequelae]
  - Insomnia [Not Recovered/Not Resolved]
  - Anxiety [Not Recovered/Not Resolved]
  - Anger [Not Recovered/Not Resolved]
  - Paraesthesia [Recovering/Resolving]
  - Bruxism [Recovering/Resolving]
  - Decreased appetite [Not Recovered/Not Resolved]
  - Fatigue [Not Recovered/Not Resolved]
  - Night sweats [Recovering/Resolving]
  - Temporomandibular pain and dysfunction syndrome [Unknown]
  - Withdrawal syndrome [Unknown]

NARRATIVE: CASE EVENT DATE: 20210101
